FAERS Safety Report 8582396-2 (Version None)
Quarter: 2012Q3

REPORT INFORMATION
  Report Type: 
  Country: None (occurrence: None)
  Receive Date: 20120809
  Receipt Date: 20120804
  Transmission Date: 20120928
  Serious: Yes (Hospitalization)
  Sender: FDA-Public Use
  Company Number: US-GLAXOSMITHKLINE-A0988654A

PATIENT
  Age: 39 Year
  Sex: Female

DRUGS (1)
  1. FLOLAN [Suspect]
     Indication: PRODUCT USED FOR UNKNOWN INDICATION
     Dosage: 18NGKM CONTINUOUS
     Dates: start: 20071130

REACTIONS (4)
  - PAIN [None]
  - DEVICE RELATED INFECTION [None]
  - CATHETER SITE ERYTHEMA [None]
  - CATHETER SITE DISCHARGE [None]
